FAERS Safety Report 26086346 (Version 1)
Quarter: 2025Q4

REPORT INFORMATION
  Report Type: Report from Study
  Country: US (occurrence: US)
  Receive Date: 20251125
  Receipt Date: 20251125
  Transmission Date: 20260117
  Serious: Yes (Hospitalization, Other)
  Sender: ABBVIE
  Company Number: US-ABBVIE-6555799

PATIENT
  Age: 30 Year
  Sex: Male

DRUGS (2)
  1. HUMIRA [Suspect]
     Active Substance: ADALIMUMAB
     Indication: Crohn^s disease
     Route: 058
     Dates: start: 2018, end: 2024
  2. HUMIRA [Suspect]
     Active Substance: ADALIMUMAB
     Route: 058
     Dates: start: 2013, end: 2014

REACTIONS (5)
  - Gastrointestinal scarring [Recovered/Resolved]
  - Disease recurrence [Not Recovered/Not Resolved]
  - Gastrointestinal wall thickening [Recovered/Resolved]
  - Therapeutic product effect incomplete [Not Recovered/Not Resolved]
  - Drug ineffective [Unknown]

NARRATIVE: CASE EVENT DATE: 20140101
